FAERS Safety Report 9228886 (Version 1)
Quarter: 2013Q2

REPORT INFORMATION
  Report Type: Spontaneous
  Country: US (occurrence: US)
  Receive Date: 20130412
  Receipt Date: 20130412
  Transmission Date: 20140414
  Serious: Yes (Hospitalization)
  Sender: FDA-Public Use
  Company Number: US-PFIZER INC-2013114733

PATIENT
  Age: 64 Year
  Sex: Female

DRUGS (1)
  1. RAPAMUNE [Suspect]
     Indication: RENAL TRANSPLANT
     Dosage: 1 MG, 2X/DAY (BID)
     Dates: start: 20101011

REACTIONS (1)
  - Infection [Unknown]
